FAERS Safety Report 22399573 (Version 1)
Quarter: 2023Q2

REPORT INFORMATION
  Report Type: Other
  Country: None (occurrence: FR)
  Receive Date: 20230602
  Receipt Date: 20230602
  Transmission Date: 20230721
  Serious: Yes (Hospitalization)
  Sender: FDA-Public Use
  Company Number: FR-B.Braun Medical Inc.-2142286

PATIENT
  Age: 79 Year
  Sex: Male

DRUGS (6)
  1. CEFAZOLIN [Suspect]
     Active Substance: CEFAZOLIN
     Indication: Infection
  2. RITUXIMAB [Concomitant]
     Active Substance: RITUXIMAB
  3. ISONIAZID [Suspect]
     Active Substance: ISONIAZID
  4. RIFAMPIN [Suspect]
     Active Substance: RIFAMPIN
  5. ETHAMBUTOL [Suspect]
     Active Substance: ETHAMBUTOL HYDROCHLORIDE
  6. PYRAZINAMIDE [Suspect]
     Active Substance: PYRAZINAMIDE

REACTIONS (1)
  - Haematemesis [Recovered/Resolved]
